FAERS Safety Report 13312858 (Version 2)
Quarter: 2017Q1

REPORT INFORMATION
  Report Type: Spontaneous
  Country: US (occurrence: US)
  Receive Date: 20170309
  Receipt Date: 20170330
  Transmission Date: 20170428
  Serious: Yes (Hospitalization, Other)
  Sender: FDA-Public Use
  Company Number: US-SA-2017SA036753

PATIENT
  Age: 49 Year
  Sex: Female

DRUGS (4)
  1. CYCLOPHOSPHAMIDE. [Suspect]
     Active Substance: CYCLOPHOSPHAMIDE
     Indication: BREAST CANCER
     Route: 042
  2. DOCETAXEL. [Suspect]
     Active Substance: DOCETAXEL
     Indication: BREAST CANCER
     Route: 042
  3. DOCETAXEL. [Suspect]
     Active Substance: DOCETAXEL
     Indication: BREAST CANCER
     Route: 042
  4. CYCLOPHOSPHAMIDE. [Suspect]
     Active Substance: CYCLOPHOSPHAMIDE
     Indication: BREAST CANCER
     Route: 042

REACTIONS (13)
  - Pulmonary arterial pressure increased [Recovering/Resolving]
  - Renal impairment [Recovering/Resolving]
  - Scleroderma renal crisis [Recovering/Resolving]
  - Skin hypertrophy [Recovering/Resolving]
  - Pain in extremity [Recovering/Resolving]
  - Musculoskeletal stiffness [Recovering/Resolving]
  - Cardiac failure congestive [Recovering/Resolving]
  - Pulmonary arterial hypertension [Recovering/Resolving]
  - Ejection fraction decreased [Recovering/Resolving]
  - Systemic scleroderma [Recovering/Resolving]
  - Dyspnoea [Recovering/Resolving]
  - Thrombotic microangiopathy [Recovering/Resolving]
  - Oedema peripheral [Recovering/Resolving]
